FAERS Safety Report 21809722 (Version 1)
Quarter: 2023Q1

REPORT INFORMATION
  Report Type: Spontaneous
  Country: ES (occurrence: ES)
  Receive Date: 20230103
  Receipt Date: 20230103
  Transmission Date: 20230418
  Serious: No
  Sender: FDA-Public Use
  Company Number: ES-ALKEM LABORATORIES LIMITED-ES-ALKEM-2022-11715

PATIENT
  Age: 15 Year
  Sex: Female

DRUGS (2)
  1. SIROLIMUS [Suspect]
     Active Substance: SIROLIMUS
     Indication: Malformation venous
     Dosage: 0.8 MILLIGRAM/SQ. METER, EVERY 12 HOURS
     Route: 048
  2. Methoprim-sulfamethoxazole [Concomitant]
     Indication: Antifungal prophylaxis
     Dosage: UNK, 2 DAYS A WEEK
     Route: 065

REACTIONS (1)
  - Treatment noncompliance [Unknown]
